FAERS Safety Report 6750618-6 (Version None)
Quarter: 2010Q2

REPORT INFORMATION
  Report Type: 
  Country: None (occurrence: None)
  Receive Date: 20100527
  Receipt Date: 20100520
  Transmission Date: 20101027
  Serious: Yes (Death)
  Sender: FDA-Public Use
  Company Number: ALD1-AT-2010-0025

PATIENT
  Sex: Female
  Weight: 0.57 kg

DRUGS (4)
  1. METHYLDOPA [Suspect]
     Indication: DRUG EXPOSURE DURING PREGNANCY
     Route: 064
  2. MAGNESIUM (MAGNESIUM) (MAGNESIUM) [Suspect]
     Indication: DRUG EXPOSURE DURING PREGNANCY
     Route: 064
  3. PREDNISOLONE [Suspect]
     Indication: DRUG EXPOSURE DURING PREGNANCY
     Dosage: 5 MG
  4. MEZLOCILLINE (MEZLOCILLINE) (MEZLOCILLINE) [Suspect]
     Indication: DRUG EXPOSURE DURING PREGNANCY

REACTIONS (5)
  - CAESAREAN SECTION [None]
  - DEATH NEONATAL [None]
  - MATERNAL DRUGS AFFECTING FOETUS [None]
  - PREMATURE BABY [None]
  - SMALL FOR DATES BABY [None]
